FAERS Safety Report 24372662 (Version 6)
Quarter: 2025Q1

REPORT INFORMATION
  Report Type: Spontaneous
  Country: US (occurrence: US)
  Receive Date: 20240927
  Receipt Date: 20250228
  Transmission Date: 20250408
  Serious: No
  Sender: PFIZER
  Company Number: US-PFIZER INC-202400260802

PATIENT
  Age: 57 Year
  Sex: Female

DRUGS (3)
  1. TIVDAK [Suspect]
     Active Substance: TISOTUMAB VEDOTIN-TFTV
     Dates: start: 20240510
  2. TIVDAK [Suspect]
     Active Substance: TISOTUMAB VEDOTIN-TFTV
     Dosage: 120 MG, EVERY 3 WEEKS (INFUSION, EVERY 21 DAYS)
     Dates: start: 202405
  3. TIVDAK [Suspect]
     Active Substance: TISOTUMAB VEDOTIN-TFTV
     Dosage: 90 MG, EVERY 3 WEEKS (VIA INFUSION Q21 DAYS/90MG BEING DOSED AT 1.56MG/KG)/ 90MG EVERY 21 DAYS
     Dates: start: 202405

REACTIONS (1)
  - Weight decreased [Unknown]
